FAERS Safety Report 13960688 (Version 1)
Quarter: 2017Q3

REPORT INFORMATION
  Report Type: Spontaneous
  Country: US (occurrence: US)
  Receive Date: 20170912
  Receipt Date: 20170912
  Transmission Date: 20171128
  Serious: No
  Sender: FDA-Public Use
  Company Number: US-PFIZER INC-2017390467

PATIENT

DRUGS (1)
  1. METHYLPREDNISOLONE SODIUM SUCCINATE. [Suspect]
     Active Substance: METHYLPREDNISOLONE SODIUM SUCCINATE
     Indication: CARTILAGE INJURY
     Dosage: UNK
     Dates: start: 20160922

REACTIONS (3)
  - Libido decreased [Unknown]
  - Disturbance in sexual arousal [Unknown]
  - Erectile dysfunction [Unknown]
